FAERS Safety Report 8186662-4 (Version None)
Quarter: 2012Q1

REPORT INFORMATION
  Report Type: 
  Country: None (occurrence: None)
  Receive Date: 20120306
  Receipt Date: 20120222
  Transmission Date: 20120608
  Serious: Yes (Hospitalization)
  Sender: FDA-Public Use
  Company Number: JP-UCBSA-045615

PATIENT
  Age: 67 Year
  Sex: Male

DRUGS (9)
  1. CERTOLIZUMAB PEGOL [Suspect]
     Dosage: STUDY:275-08-001
     Route: 058
  2. LANSOPRAZOLE [Concomitant]
     Indication: GASTRITIS PROPHYLAXIS
     Dosage: TOTAL DAILY DOSE: 15 MG
     Dates: start: 20070329
  3. FOLIC ACID [Concomitant]
     Dosage: DOSE: 5 MG PER WEEK
     Dates: start: 20110604
  4. RHEUMATREX [Suspect]
     Dosage: DOSE: 8 MG PER WEEK (4 MG-2MG-2MG)
     Route: 048
     Dates: start: 20090109, end: 20110520
  5. FOLIC ACID [Concomitant]
     Dosage: DOSE: 5MG PER WEEK
     Dates: start: 20070413, end: 20110521
  6. BERAPROST SODIUM [Concomitant]
     Dosage: TOTAL DAILY DOSE: 120 MCG
     Dates: start: 20090410
  7. CERTOLIZUMAB PEGOL [Suspect]
     Indication: RHEUMATOID ARTHRITIS
     Route: 058
     Dates: start: 20090327, end: 20111021
  8. CERTOLIZUMAB PEGOL [Suspect]
     Dosage: STUDY:275-08-001
     Route: 058
  9. RHEUMATREX [Suspect]
     Indication: RHEUMATOID ARTHRITIS
     Dosage: DOSE: 8 MG PER WEEK (4 MG-2MG-2MG)
     Route: 048
     Dates: start: 20110602, end: 20111104

REACTIONS (1)
  - PNEUMONIA [None]
